FAERS Safety Report 25854091 (Version 1)
Quarter: 2025Q3

REPORT INFORMATION
  Report Type: Spontaneous
  Country: JP (occurrence: JP)
  Receive Date: 20250926
  Receipt Date: 20250926
  Transmission Date: 20251020
  Serious: Yes (Other)
  Sender: INTERCHEM
  Company Number: JP-HQ SPECIALTY-JP-2025INT000070

PATIENT
  Age: 6 Decade
  Sex: Male

DRUGS (1)
  1. DEXMEDETOMIDINE HYDROCHLORIDE [Suspect]
     Active Substance: DEXMEDETOMIDINE HYDROCHLORIDE
     Indication: Sedation
     Route: 065

REACTIONS (1)
  - Ventricular fibrillation [Unknown]
